FAERS Safety Report 20195289 (Version 3)
Quarter: 2021Q4

REPORT INFORMATION
  Report Type: Report from Study
  Country: CN (occurrence: None)
  Receive Date: 20211216
  Receipt Date: 20211228
  Transmission Date: 20220303
  Serious: Yes (Hospitalization)
  Sender: FDA-Public Use
  Company Number: CN-ROCHE-2979034

PATIENT
  Age: 56 Year
  Sex: Female
  Weight: 59 kg

DRUGS (28)
  1. PLACEBO [Suspect]
     Active Substance: UNSPECIFIED INGREDIENT
     Indication: Small cell lung cancer extensive stage
     Dosage: MOST RECENT DOSE OF BEVACIZUMAB 24/11/2021
     Route: 042
     Dates: start: 20210812
  2. ATEZOLIZUMAB [Suspect]
     Active Substance: ATEZOLIZUMAB
     Indication: Small cell lung cancer extensive stage
     Dosage: RECENT DOSE OF ATEZOLIZUMAB 24/11/2021
     Route: 041
     Dates: start: 20210812
  3. CARBOPLATIN [Suspect]
     Active Substance: CARBOPLATIN
     Indication: Small cell lung cancer extensive stage
     Dosage: RECENT DOSE OF CARBOPLATIN 13/10/2021 (545 MG)
     Route: 042
     Dates: start: 20210812
  4. ETOPOSIDE [Suspect]
     Active Substance: ETOPOSIDE
     Indication: Small cell lung cancer extensive stage
     Dosage: RECENT DOSE OF ETOPOSIDE 15/10/2021
     Route: 042
     Dates: start: 20210812
  5. BUDESONIDE\FORMOTEROL FUMARATE [Concomitant]
     Active Substance: BUDESONIDE\FORMOTEROL FUMARATE
  6. ILAPRAZOLE [Concomitant]
     Active Substance: ILAPRAZOLE
  7. AZASETRON HYDROCHLORIDE [Concomitant]
     Active Substance: AZASETRON HYDROCHLORIDE
     Route: 042
     Dates: start: 20210812, end: 20210815
  8. MONTELUKAST SODIUM [Concomitant]
     Active Substance: MONTELUKAST SODIUM
     Indication: Asthma
     Dates: start: 20210811, end: 20210817
  9. AMBROXOL HYDROCHLORIDE [Concomitant]
     Active Substance: AMBROXOL HYDROCHLORIDE
  10. TERBUTALINE [Concomitant]
     Active Substance: TERBUTALINE
  11. INSULIN GLARGINE [Concomitant]
     Active Substance: INSULIN GLARGINE
  12. METHOXYPHENAMINE HYDROCHLORIDE [Concomitant]
     Active Substance: METHOXYPHENAMINE HYDROCHLORIDE
  13. DOXOFYLLINE [Concomitant]
     Active Substance: DOXOFYLLINE
  14. INSULIN ASPART [Concomitant]
     Active Substance: INSULIN ASPART
  15. INSULIN NOS [Concomitant]
     Active Substance: INSULIN NOS
  16. GRANULOCYTE COLONY-STIMULATING FACTOR NOS [Concomitant]
     Active Substance: GRANULOCYTE COLONY-STIMULATING FACTOR NOS
  17. EUCALYPTOL, LIMONENE AND PINENE ENTERIC SOFT CAPSULES [Concomitant]
  18. ESOMEPRAZOLE SODIUM [Concomitant]
     Active Substance: ESOMEPRAZOLE SODIUM
  19. LEUCOGEN TABLETS [Concomitant]
  20. PEGYLATED RECOMBINANT HUMAN GRANULOCYTE COLONY-STIMULATING FACTOR [Concomitant]
  21. CALCIUM CARBONATE\CHOLECALCIFEROL [Concomitant]
     Active Substance: CALCIUM CARBONATE\CHOLECALCIFEROL
  22. LEVOFLOXACIN [Concomitant]
     Active Substance: LEVOFLOXACIN
  23. DENOSUMAB [Concomitant]
     Active Substance: DENOSUMAB
  24. LEVOFLOXACIN [Concomitant]
     Active Substance: LEVOFLOXACIN
  25. NIFEDIPINE [Concomitant]
     Active Substance: NIFEDIPINE
  26. BUDESONIDE [Concomitant]
     Active Substance: BUDESONIDE
  27. METHYLPREDNISOLONE [Concomitant]
     Active Substance: METHYLPREDNISOLONE
     Dates: start: 20211215
  28. HUMAN IMMUNOGLOBULIN G [Concomitant]
     Active Substance: HUMAN IMMUNOGLOBULIN G
     Indication: Immune-mediated encephalitis
     Dates: start: 20211215

REACTIONS (1)
  - Encephalitis autoimmune [Not Recovered/Not Resolved]

NARRATIVE: CASE EVENT DATE: 20211210
